FAERS Safety Report 15383181 (Version 4)
Quarter: 2019Q2

REPORT INFORMATION
  Report Type: Spontaneous
  Country: US (occurrence: US)
  Receive Date: 20180913
  Receipt Date: 20190610
  Transmission Date: 20190711
  Serious: Yes (Death, Other)
  Sender: FDA-Public Use
  Company Number: US-PFIZER INC-2018371527

PATIENT
  Age: 84 Year
  Sex: Male

DRUGS (1)
  1. TOVIAZ [Suspect]
     Active Substance: FESOTERODINE FUMARATE
     Indication: HYPERTONIC BLADDER
     Dosage: 4 MG, UNK
     Dates: end: 20181219

REACTIONS (4)
  - Neoplasm malignant [Fatal]
  - Aphasia [Unknown]
  - Cardiac disorder [Fatal]
  - Cerebrovascular accident [Unknown]
